FAERS Safety Report 14608601 (Version 2)
Quarter: 2018Q4

REPORT INFORMATION
  Report Type: Spontaneous
  Country: US (occurrence: US)
  Receive Date: 20180307
  Receipt Date: 20181203
  Transmission Date: 20190204
  Serious: No
  Sender: FDA-Public Use
  Company Number: US-PTC THERAPEUTICS, INC.-US-2018PTC000045

PATIENT

DRUGS (1)
  1. EMFLAZA [Suspect]
     Active Substance: DEFLAZACORT
     Indication: MUSCULAR DYSTROPHY
     Dosage: 1 ML, QD (TOTAL DAILY DOSE OF 22.75 MG)
     Route: 048
     Dates: start: 20171031

REACTIONS (6)
  - Ear swelling [Unknown]
  - Erythema [Unknown]
  - Mood altered [Unknown]
  - Anger [Unknown]
  - Mood swings [Unknown]
  - Abnormal behaviour [Unknown]

NARRATIVE: CASE EVENT DATE: 201711
